FAERS Safety Report 9570063 (Version 2)
Quarter: 2014Q1

REPORT INFORMATION
  Report Type: Spontaneous
  Country: US (occurrence: US)
  Receive Date: 20130930
  Receipt Date: 20140226
  Transmission Date: 20141002
  Serious: No
  Sender: FDA-Public Use
  Company Number: US-AMGEN-USASP2013064757

PATIENT
  Age: 42 Year
  Sex: Male
  Weight: 84.81 kg

DRUGS (7)
  1. ENBREL [Suspect]
     Indication: PRODUCT USED FOR UNKNOWN INDICATION
     Dosage: 50 MG, ONCE A WEEK
     Route: 058
  2. PREDNISONE [Concomitant]
     Dosage: 10 MG, UNK
  3. METHOTREXATE [Concomitant]
     Dosage: 2.5 MG, UNK
  4. FOLIC ACID [Concomitant]
     Dosage: UNK
  5. VITAMIN B COMPLEX PLUS [Concomitant]
     Dosage: UNK
  6. HYDROCODONE [Concomitant]
     Dosage: UNK
  7. HOMATROPINE [Concomitant]
     Dosage: UNK

REACTIONS (4)
  - Nodule [Unknown]
  - Acrochordon [Unknown]
  - Rash papular [Unknown]
  - Skin discolouration [Unknown]
